FAERS Safety Report 21671518 (Version 1)
Quarter: 2022Q4

REPORT INFORMATION
  Report Type: Other
  Country: HU (occurrence: HU)
  Receive Date: 20221202
  Receipt Date: 20221202
  Transmission Date: 20230113
  Serious: Yes (Other)
  Sender: FDA-Public Use
  Company Number: HU-EGIS-HUN-2022-1243

PATIENT
  Age: 65 Year
  Sex: Female

DRUGS (6)
  1. IBANDRONIC ACID [Suspect]
     Active Substance: IBANDRONIC ACID
     Indication: Breast cancer metastatic
     Route: 065
  2. IBANDRONIC ACID [Suspect]
     Active Substance: IBANDRONIC ACID
     Indication: Hormone receptor positive HER2 negative breast cancer
  3. LETROZOLE [Suspect]
     Active Substance: LETROZOLE
     Indication: Breast cancer metastatic
     Dosage: THE PATIENT RECEIVED A TOTAL OF 12 CYCLES.
     Route: 065
  4. LETROZOLE [Suspect]
     Active Substance: LETROZOLE
     Indication: Hormone receptor positive HER2 negative breast cancer
  5. PALBOCICLIB [Suspect]
     Active Substance: PALBOCICLIB
     Indication: Breast cancer metastatic
     Dosage: THE PATIENT RECEIVED A TOTAL OF 12 CYCLES.
     Route: 065
  6. PALBOCICLIB [Suspect]
     Active Substance: PALBOCICLIB
     Indication: Hormone receptor positive HER2 negative breast cancer

REACTIONS (1)
  - Neutropenia [Unknown]
